FAERS Safety Report 24320192 (Version 1)
Quarter: 2024Q3

REPORT INFORMATION
  Report Type: Spontaneous
  Country: IT (occurrence: IT)
  Receive Date: 20240914
  Receipt Date: 20240914
  Transmission Date: 20241017
  Serious: Yes (Hospitalization)
  Sender: GRIFOLS
  Company Number: IT-IGSA-BIG0029802

PATIENT
  Sex: Female

DRUGS (1)
  1. PROLASTIN [Suspect]
     Active Substance: .ALPHA.1-PROTEINASE INHIBITOR HUMAN
     Indication: Alpha-1 antitrypsin deficiency
     Route: 042

REACTIONS (2)
  - Hospitalisation [Unknown]
  - Intentional dose omission [Unknown]
